FAERS Safety Report 21362478 (Version 2)
Quarter: 2023Q1

REPORT INFORMATION
  Report Type: Report from Study
  Country: US (occurrence: US)
  Receive Date: 20220922
  Receipt Date: 20230131
  Transmission Date: 20230417
  Serious: Yes (Hospitalization)
  Sender: FDA-Public Use
  Company Number: US-ALNYLAM PHARMACEUTICALS, INC.-ALN-2022-003256

PATIENT

DRUGS (1)
  1. ONPATTRO [Suspect]
     Active Substance: PATISIRAN SODIUM
     Indication: Hereditary neuropathic amyloidosis
     Dosage: WEIGHT BASED DOSING, Q3W
     Route: 042
     Dates: start: 20201224

REACTIONS (3)
  - Ulcer haemorrhage [Unknown]
  - Inappropriate schedule of product administration [Unknown]
  - Back pain [Recovered/Resolved]
